FAERS Safety Report 20770532 (Version 1)
Quarter: 2022Q2

REPORT INFORMATION
  Report Type: Spontaneous
  Country: PL (occurrence: PL)
  Receive Date: 20220429
  Receipt Date: 20220429
  Transmission Date: 20220721
  Serious: Yes (Hospitalization, Other)
  Sender: FDA-Public Use
  Company Number: PL-ASPEN-GLO2022PL001778

PATIENT
  Age: 84 Year
  Sex: Female

DRUGS (2)
  1. FENTANYL [Suspect]
     Active Substance: FENTANYL
     Indication: Anaesthesia procedure
     Dosage: 20 MICROGRAM
     Route: 050
     Dates: start: 20220329, end: 20220329
  2. MARCAINE [Suspect]
     Active Substance: BUPIVACAINE HYDROCHLORIDE
     Indication: Anaesthesia procedure
     Dosage: 9.6 MILLIGRAM,9.6 MG
     Route: 050
     Dates: start: 20220329, end: 20220329

REACTIONS (1)
  - Therapeutic product effect delayed [Unknown]

NARRATIVE: CASE EVENT DATE: 20220329
